FAERS Safety Report 14852218 (Version 1)
Quarter: 2018Q2

REPORT INFORMATION
  Report Type: Spontaneous
  Country: US (occurrence: US)
  Receive Date: 20180507
  Receipt Date: 20180507
  Transmission Date: 20180711
  Serious: No
  Sender: FDA-Public Use
  Company Number: US-PFIZER INC-2018042785

PATIENT
  Age: 70 Year
  Sex: Male

DRUGS (2)
  1. XANAX XR [Suspect]
     Active Substance: ALPRAZOLAM
     Indication: ANXIETY
     Dosage: 2 MG, UNK
  2. XANAX XR [Suspect]
     Active Substance: ALPRAZOLAM
     Dosage: UNK, (CUTS THEM IN HALF AND USE HALF)

REACTIONS (3)
  - Oral disorder [Unknown]
  - Panic attack [Unknown]
  - Wrong technique in product usage process [Unknown]
